FAERS Safety Report 15802770 (Version 8)
Quarter: 2022Q1

REPORT INFORMATION
  Report Type: Report from Study
  Country: ES (occurrence: None)
  Receive Date: 20190109
  Receipt Date: 20220325
  Transmission Date: 20220423
  Serious: Yes (Hospitalization)
  Sender: FDA-Public Use
  Company Number: ES-ROCHE-2228193

PATIENT
  Age: 72 Year
  Sex: Female
  Weight: 70.4 kg

DRUGS (44)
  1. ATEZOLIZUMAB [Suspect]
     Active Substance: ATEZOLIZUMAB
     Indication: Non-small cell lung cancer
     Dosage: MOST RECENT DOSE OF ATEZOLIZUMAB PRIOR TO AE ONSET ON 07/NOV/2018
     Route: 041
     Dates: start: 20181107
  2. CISPLATIN [Suspect]
     Active Substance: CISPLATIN
     Indication: Non-small cell lung cancer
     Dosage: DATE OF LAST CISPLATIN (127.5 MG) ADMINISTERED PRIOR TO EVENT ON 02/OCT/2018
     Route: 042
     Dates: start: 20180712
  3. PEMETREXED [Suspect]
     Active Substance: PEMETREXED
     Indication: Non-small cell lung cancer
     Dosage: DATE OF LAST PREMETREXED (680 MG) ADMINISTERED PRIOR TO EVENT ON 02/OCT/2018.
     Route: 042
     Dates: start: 20180712
  4. ENALAPRIL\HYDROCHLOROTHIAZIDE [Concomitant]
     Active Substance: ENALAPRIL\HYDROCHLOROTHIAZIDE
     Indication: Hypertension
  5. SIMVASTATIN [Concomitant]
     Active Substance: SIMVASTATIN
     Indication: Dyslipidaemia
  6. ASPIRIN [Concomitant]
     Active Substance: ASPIRIN
     Indication: Thrombosis prophylaxis
  7. CALCIUM CARBONATE\CHOLECALCIFEROL [Concomitant]
     Active Substance: CALCIUM CARBONATE\CHOLECALCIFEROL
     Indication: Osteoporosis prophylaxis
  8. OMEPRAZOLE [Concomitant]
     Active Substance: OMEPRAZOLE
     Dosage: GASTROINTESTINAL REFLUXE
  9. LORAZEPAM [Concomitant]
     Active Substance: LORAZEPAM
     Indication: Prophylaxis
  10. ENOXAPARIN [Concomitant]
     Active Substance: ENOXAPARIN
     Indication: Immune-mediated adverse reaction
     Dates: start: 20181124, end: 20181203
  11. DEXKETOPROFEN [Concomitant]
     Active Substance: DEXKETOPROFEN
     Indication: Pain prophylaxis
     Dates: start: 20181125, end: 20181130
  12. DEXKETOPROFEN [Concomitant]
     Active Substance: DEXKETOPROFEN
     Dates: start: 20181130, end: 20181203
  13. DIAZEPAM [Concomitant]
     Active Substance: DIAZEPAM
     Dates: start: 20181125, end: 20181127
  14. METHIMAZOLE [Concomitant]
     Active Substance: METHIMAZOLE
     Dates: start: 20181128, end: 20181203
  15. METHIMAZOLE [Concomitant]
     Active Substance: METHIMAZOLE
     Dates: start: 20181210, end: 20181221
  16. METHIMAZOLE [Concomitant]
     Active Substance: METHIMAZOLE
     Dates: start: 20181121, end: 20181123
  17. AMITRIPTYLINE HYDROCHLORIDE [Concomitant]
     Active Substance: AMITRIPTYLINE HYDROCHLORIDE
     Indication: Immune-mediated adverse reaction
     Dates: start: 20181127, end: 20181203
  18. PREGABALIN [Concomitant]
     Active Substance: PREGABALIN
     Indication: Immune-mediated adverse reaction
     Dates: start: 20181127, end: 20181203
  19. LACTULOSE [Concomitant]
     Active Substance: LACTULOSE
     Indication: Abdominal pain
     Dates: start: 20181202, end: 20181203
  20. DEXAMETHASONE [Concomitant]
     Active Substance: DEXAMETHASONE
     Indication: Immune-mediated adverse reaction
     Route: 048
     Dates: start: 20181129, end: 20181205
  21. DEXAMETHASONE [Concomitant]
     Active Substance: DEXAMETHASONE
     Route: 048
  22. DEXAMETHASONE [Concomitant]
     Active Substance: DEXAMETHASONE
     Route: 048
     Dates: start: 20181205, end: 20181210
  23. ACETAMINOPHEN [Concomitant]
     Active Substance: ACETAMINOPHEN
     Indication: Tumour pain
     Dates: start: 20181123, end: 20181203
  24. ACETAMINOPHEN [Concomitant]
     Active Substance: ACETAMINOPHEN
     Dates: start: 20181210, end: 20181221
  25. ACETAMINOPHEN [Concomitant]
     Active Substance: ACETAMINOPHEN
     Dates: start: 20181130
  26. BROMAZEPAM [Concomitant]
     Active Substance: BROMAZEPAM
     Indication: Asthenia
     Dates: start: 20181211, end: 20181219
  27. BROMAZEPAM [Concomitant]
     Active Substance: BROMAZEPAM
     Dates: start: 20181127, end: 20181203
  28. METAMIZOL [Concomitant]
     Active Substance: METAMIZOLE SODIUM
     Indication: Tumour pain
     Dates: start: 20181211, end: 20181221
  29. FUROSEMIDE [Concomitant]
     Active Substance: FUROSEMIDE
     Indication: Asthenia
     Dates: start: 20181217, end: 20181221
  30. AMOXICILLIN [Concomitant]
     Active Substance: AMOXICILLIN
     Indication: Immune-mediated adverse reaction
     Dates: start: 20181120, end: 20181123
  31. PREDNISONE [Concomitant]
     Active Substance: PREDNISONE
     Indication: Axonal neuropathy
     Route: 048
     Dates: start: 20181218, end: 20181219
  32. PREDNISONE [Concomitant]
     Active Substance: PREDNISONE
     Route: 048
     Dates: start: 20181219, end: 20181228
  33. PREDNISONE [Concomitant]
     Active Substance: PREDNISONE
     Route: 048
     Dates: start: 20181218, end: 20181219
  34. PREDNISONE [Concomitant]
     Active Substance: PREDNISONE
     Route: 048
     Dates: start: 20181228, end: 20190111
  35. PREDNISONE [Concomitant]
     Active Substance: PREDNISONE
     Route: 048
     Dates: start: 20190111, end: 20190208
  36. PREDNISONE [Concomitant]
     Active Substance: PREDNISONE
     Route: 048
     Dates: start: 20190208, end: 20190222
  37. PREDNISONE [Concomitant]
     Active Substance: PREDNISONE
     Route: 048
     Dates: start: 20190222, end: 20190308
  38. PREDNISONE [Concomitant]
     Active Substance: PREDNISONE
     Route: 048
     Dates: start: 20190308, end: 20190315
  39. PREDNISONE [Concomitant]
     Active Substance: PREDNISONE
     Route: 048
     Dates: start: 20190316, end: 20190322
  40. PREDNISONE [Concomitant]
     Active Substance: PREDNISONE
     Route: 048
     Dates: start: 20190323, end: 20190413
  41. PREDNISONE [Concomitant]
     Active Substance: PREDNISONE
     Route: 048
     Dates: start: 20190414, end: 20190510
  42. PREDNISONE [Concomitant]
     Active Substance: PREDNISONE
     Route: 048
     Dates: start: 20190510
  43. TRAMADOL [Concomitant]
     Active Substance: TRAMADOL
     Indication: Pain prophylaxis
     Dates: start: 20181121, end: 20181123
  44. GEMCITABINE [Concomitant]
     Active Substance: GEMCITABINE
     Route: 065
     Dates: start: 20211103

REACTIONS (1)
  - Axonal neuropathy [Recovered/Resolved]

NARRATIVE: CASE EVENT DATE: 20181205
